FAERS Safety Report 6528320-5 (Version None)
Quarter: 2010Q1

REPORT INFORMATION
  Report Type: 
  Country: None (occurrence: None)
  Receive Date: 20100106
  Receipt Date: 20091229
  Transmission Date: 20100710
  Serious: Yes (Other)
  Sender: FDA-Public Use
  Company Number: US-JNJFOC-20100100010

PATIENT
  Sex: Female

DRUGS (15)
  1. DURAGESIC-100 [Suspect]
     Indication: BACK PAIN
     Route: 062
  2. DURAGESIC-100 [Suspect]
     Route: 062
  3. TOPIRAMATE [Concomitant]
     Indication: MIGRAINE
     Route: 048
  4. METOPROLOL TARTRATE [Concomitant]
     Indication: HYPERTENSION
     Route: 048
  5. XANAX [Concomitant]
     Indication: ANXIETY
     Route: 048
  6. ASTELIN [Concomitant]
     Indication: MULTIPLE ALLERGIES
     Route: 045
  7. LISINOPRIL [Concomitant]
     Indication: HYPERTENSION
     Route: 048
  8. OXYCODONE [Concomitant]
     Indication: BREAKTHROUGH PAIN
     Route: 048
  9. ADVAIR DISKUS 100/50 [Concomitant]
     Indication: ASTHMA
     Route: 048
  10. FLONASE [Concomitant]
     Indication: MULTIPLE ALLERGIES
     Route: 045
  11. VENTOLIN [Concomitant]
     Indication: ASTHMA
     Route: 055
  12. FUROSEMIDE [Concomitant]
     Indication: HYPERTENSION
     Route: 048
  13. POTASSIUM [Concomitant]
     Indication: MEDICAL DIET
     Route: 048
  14. PROAIR HFA [Concomitant]
     Indication: ASTHMA
     Route: 055
  15. SINGULAIR [Concomitant]
     Indication: MULTIPLE ALLERGIES
     Route: 048

REACTIONS (6)
  - BACK INJURY [None]
  - DEPRESSION [None]
  - DERMATITIS CONTACT [None]
  - DIABETES MELLITUS [None]
  - MUSCLE SPASMS [None]
  - THERAPEUTIC RESPONSE DECREASED [None]
